FAERS Safety Report 25185779 (Version 1)
Quarter: 2025Q2

REPORT INFORMATION
  Report Type: Spontaneous
  Country: BE (occurrence: BE)
  Receive Date: 20250410
  Receipt Date: 20250410
  Transmission Date: 20250716
  Serious: Yes (Hospitalization)
  Sender: ELI LILLY AND CO
  Company Number: BE-ELI_LILLY_AND_COMPANY-BE202504001908

PATIENT
  Sex: Female

DRUGS (4)
  1. MOUNJARO [Suspect]
     Active Substance: TIRZEPATIDE
     Indication: Type 2 diabetes mellitus
     Route: 065
  2. MOUNJARO [Suspect]
     Active Substance: TIRZEPATIDE
     Indication: Weight control
  3. IALURIL [Concomitant]
     Indication: Diabetes mellitus
  4. IALURIL [Concomitant]
     Indication: Weight control

REACTIONS (1)
  - Hypotension [Unknown]
